FAERS Safety Report 10039366 (Version 2)
Quarter: 2014Q2

REPORT INFORMATION
  Report Type: Spontaneous
  Country: US (occurrence: None)
  Receive Date: 20140318
  Receipt Date: 20140617
  Transmission Date: 20141212
  Serious: No
  Sender: FDA-Public Use
  Company Number: 2014CT000006

PATIENT
  Age: 63 Year
  Sex: Female

DRUGS (3)
  1. KORLYM [Suspect]
     Indication: CUSHING^S SYNDROME
     Route: 048
     Dates: start: 201312
  2. METOPROLOL [Concomitant]
  3. AMILORIDE [Concomitant]

REACTIONS (10)
  - Rib fracture [None]
  - Respiratory tract infection [None]
  - Nausea [None]
  - Headache [None]
  - Sinusitis [None]
  - Migraine [None]
  - Blood pressure decreased [None]
  - Blood potassium decreased [None]
  - Blood pressure increased [None]
  - Muscular weakness [None]
